FAERS Safety Report 16162509 (Version 3)
Quarter: 2019Q2

REPORT INFORMATION
  Report Type: Spontaneous
  Country: IE (occurrence: IE)
  Receive Date: 20190405
  Receipt Date: 20190606
  Transmission Date: 20190711
  Serious: Yes (Hospitalization, Disabling, Other)
  Sender: FDA-Public Use
  Company Number: IE-ASTRAZENECA-2019SE49830

PATIENT
  Age: 91 Year
  Sex: Female

DRUGS (9)
  1. NEURONTIN [Suspect]
     Active Substance: GABAPENTIN
     Dosage: 100 MG, 12 - EVERY HOUR
     Route: 048
  2. LACTULOSE. [Concomitant]
     Active Substance: LACTULOSE
     Dosage: 15 MILLILITRES, 8 - EVERY HOUR
     Route: 048
  3. SEROQUEL [Suspect]
     Active Substance: QUETIAPINE FUMARATE
     Route: 048
     Dates: end: 20180508
  4. TRAVATAN [Concomitant]
     Active Substance: TRAVOPROST
  5. MEMANTINE. [Concomitant]
     Active Substance: MEMANTINE
     Route: 048
  6. NEURONTIN [Suspect]
     Active Substance: GABAPENTIN
     Dosage: 100 MG, 24 - EVERY HOUR
     Route: 048
  7. SENNA (G) [Concomitant]
     Dosage: TWO AT NIGHT
     Route: 048
  8. HALOPERIDOL. [Suspect]
     Active Substance: HALOPERIDOL
     Dosage: UNKNOWN
     Route: 065
  9. DONEPEZIL. [Concomitant]
     Active Substance: DONEPEZIL
     Route: 048

REACTIONS (19)
  - Wound [Not Recovered/Not Resolved]
  - Condition aggravated [Not Recovered/Not Resolved]
  - Contusion [Not Recovered/Not Resolved]
  - Coordination abnormal [Not Recovered/Not Resolved]
  - Coma [Recovering/Resolving]
  - Tremor [Not Recovered/Not Resolved]
  - Mobility decreased [Not Recovered/Not Resolved]
  - Speech disorder [Recovering/Resolving]
  - Emotional distress [Recovering/Resolving]
  - General physical health deterioration [Recovering/Resolving]
  - Skin exfoliation [Not Recovered/Not Resolved]
  - Loss of personal independence in daily activities [Not Recovered/Not Resolved]
  - Wound haemorrhage [Not Recovered/Not Resolved]
  - Eye discharge [Not Recovered/Not Resolved]
  - Somnolence [Not Recovered/Not Resolved]
  - Skin injury [Not Recovered/Not Resolved]
  - Depressed mood [Not Recovered/Not Resolved]
  - Emotional disorder [Recovering/Resolving]
  - Dysarthria [Recovering/Resolving]

NARRATIVE: CASE EVENT DATE: 201807
